FAERS Safety Report 15609815 (Version 1)
Quarter: 2018Q4

REPORT INFORMATION
  Report Type: Report from Study
  Country: DE (occurrence: DE)
  Receive Date: 20181113
  Receipt Date: 20181113
  Transmission Date: 20190205
  Serious: Yes (Hospitalization)
  Sender: FDA-Public Use
  Company Number: DE-TEVA-2018-DE-974571

PATIENT
  Age: 69 Year
  Sex: Male
  Weight: 107 kg

DRUGS (7)
  1. HYDROMORPHON [Concomitant]
     Active Substance: HYDROMORPHONE
     Route: 065
     Dates: start: 20160714, end: 20160803
  2. ABIRATERONE ACETATE. [Suspect]
     Active Substance: ABIRATERONE ACETATE
     Indication: PROSTATE CANCER METASTATIC
     Dosage: 1000 MILLIGRAM DAILY;
     Route: 048
     Dates: start: 20150708
  3. HYDROMORPHON [Concomitant]
     Active Substance: HYDROMORPHONE
     Dosage: 8 MILLIGRAM DAILY;
     Route: 065
     Dates: start: 20150702, end: 20160713
  4. PREDNISOLONE. [Suspect]
     Active Substance: PREDNISOLONE
     Indication: PROSTATE CANCER METASTATIC
     Dosage: 10 MILLIGRAM DAILY; DOSAGE FORM: UNSPECIFIED
     Route: 065
     Dates: start: 20150708
  5. NOVAMINSULFON [Concomitant]
     Active Substance: METAMIZOLE
     Indication: PROSTATE CANCER METASTATIC
     Dosage: 500 MILLIGRAM DAILY; DOSAGE FORM: UNSPECIFIED
     Route: 065
     Dates: start: 20150601
  6. HYDROMORPHON [Concomitant]
     Active Substance: HYDROMORPHONE
     Indication: PROSTATE CANCER METASTATIC
     Dosage: 16 MILLIGRAM DAILY; DOSAGE FORM: UNSPECIFIED
     Route: 065
     Dates: start: 20160804
  7. TRENANTON [Concomitant]
     Indication: PROSTATE CANCER METASTATIC
     Dosage: DOSAGE FORM: UNSPECIFIED
     Route: 065
     Dates: start: 20150708

REACTIONS (1)
  - Decubitus ulcer [Recovered/Resolved with Sequelae]

NARRATIVE: CASE EVENT DATE: 20170206
